FAERS Safety Report 4378160-0 (Version None)
Quarter: 2004Q2

REPORT INFORMATION
  Report Type: 
  Country: None (occurrence: None)
  Receive Date: 20040609
  Receipt Date: 20040525
  Transmission Date: 20050107
  Serious: Yes (Life-Threatening, Hospitalization)
  Sender: FDA-Public Use
  Company Number: 2004-06823

PATIENT
  Age: 8 Year
  Sex: Female
  Weight: 25.5 kg

DRUGS (4)
  1. VIREAD [Suspect]
     Indication: HIV INFECTION
     Dosage: 1 IN 1 D, ORAL
     Route: 048
     Dates: start: 20011001, end: 20040224
  2. DIDANOSINE (DIDANOSINE) (250 MILLIGRAM) [Suspect]
     Indication: HIV INFECTION
     Dosage: 1 IN 1 D, ORAL
     Route: 048
     Dates: start: 20011001, end: 20040224
  3. KALETRA [Concomitant]
  4. BACTRIM [Concomitant]

REACTIONS (3)
  - FAILURE TO THRIVE [None]
  - HEPATIC STEATOSIS [None]
  - PANCREATITIS [None]
